FAERS Safety Report 5222107-1 (Version None)
Quarter: 2007Q1

REPORT INFORMATION
  Report Type: 
  Country: None (occurrence: None)
  Receive Date: 20070129
  Receipt Date: 20060707
  Transmission Date: 20070707
  Serious: No
  Sender: FDA-Public Use
  Company Number: US-GLAXOSMITHKLINE-A0610360A

PATIENT
  Age: 72 Year
  Sex: Female
  Weight: 69.1 kg

DRUGS (4)
  1. WELLBUTRIN [Suspect]
     Indication: DEPRESSION
     Dosage: 150MG PER DAY
     Route: 048
     Dates: start: 20060618, end: 20060623
  2. DEPAKOTE [Concomitant]
     Dosage: 500MG AT NIGHT
  3. LITHIUM CARBONATE [Concomitant]
     Dosage: 300MG AT NIGHT
  4. LEVOTHYROXINE SODIUM [Concomitant]
     Dosage: 150MG IN THE MORNING

REACTIONS (9)
  - DIZZINESS [None]
  - ECCHYMOSIS [None]
  - HEADACHE [None]
  - HYPERHIDROSIS [None]
  - NAUSEA [None]
  - PRURITUS [None]
  - RASH [None]
  - URTICARIA [None]
  - VOMITING [None]
